FAERS Safety Report 5407368-8 (Version None)
Quarter: 2007Q3

REPORT INFORMATION
  Report Type: 
  Country: None (occurrence: None)
  Receive Date: 20070807
  Receipt Date: 20070726
  Transmission Date: 20080115
  Serious: Yes (Other)
  Sender: FDA-Public Use
  Company Number: US-ELI_LILLY_AND_COMPANY-US200707006376

PATIENT
  Age: 68 Year
  Sex: Male

DRUGS (1)
  1. CIALIS [Suspect]
     Dates: end: 20070705

REACTIONS (3)
  - BLINDNESS UNILATERAL [None]
  - DIABETES MELLITUS [None]
  - HYPERTENSION [None]
